FAERS Safety Report 26143107 (Version 1)
Quarter: 2025Q4

REPORT INFORMATION
  Report Type: Spontaneous
  Country: US (occurrence: US)
  Receive Date: 20251211
  Receipt Date: 20251211
  Transmission Date: 20260118
  Serious: No
  Sender: ALVOGEN
  Company Number: None

PATIENT

DRUGS (1)
  1. LEVOTHYROXINE SODIUM [Suspect]
     Active Substance: LEVOTHYROXINE SODIUM
     Indication: Product used for unknown indication
     Dosage: FOR 45 DAYS

REACTIONS (9)
  - Condition aggravated [Recovering/Resolving]
  - Gastrointestinal tract irritation [Recovering/Resolving]
  - Inflammation [Recovering/Resolving]
  - Myalgia [Recovering/Resolving]
  - Bursitis [Recovering/Resolving]
  - Muscle spasms [Recovering/Resolving]
  - Diarrhoea [Recovering/Resolving]
  - Therapeutic response changed [Unknown]
  - Product substitution issue [Unknown]
